FAERS Safety Report 5887244-7 (Version None)
Quarter: 2008Q3

REPORT INFORMATION
  Report Type: 
  Country: None (occurrence: None)
  Receive Date: 20080915
  Receipt Date: 20080902
  Transmission Date: 20090109
  Serious: Yes (Death)
  Sender: FDA-Public Use
  Company Number: 2008BI022932

PATIENT
  Sex: Male

DRUGS (1)
  1. AVONEX [Suspect]

REACTIONS (1)
  - DEATH [None]
